FAERS Safety Report 5379418-9 (Version None)
Quarter: 2007Q3

REPORT INFORMATION
  Report Type: 
  Country: None (occurrence: None)
  Receive Date: 20070705
  Receipt Date: 20070703
  Transmission Date: 20080115
  Serious: Yes (Disabling)
  Sender: FDA-Public Use
  Company Number: GB-MERCK-0707GBR00011

PATIENT
  Age: 60 Year
  Sex: Female
  Weight: 70 kg

DRUGS (5)
  1. ZOCOR [Suspect]
     Indication: BLOOD CHOLESTEROL INCREASED
     Route: 048
     Dates: start: 20060718, end: 20070604
  2. ATENOLOL [Concomitant]
     Indication: BLOOD PRESSURE INCREASED
     Route: 048
  3. IBUPROFEN [Concomitant]
     Indication: BACK PAIN
     Route: 048
  4. LANSOPRAZOLE [Concomitant]
     Route: 048
     Dates: start: 20050401
  5. TILDIEM [Concomitant]
     Indication: BLOOD PRESSURE INCREASED
     Route: 048
     Dates: start: 20030601, end: 20070307

REACTIONS (4)
  - ARTHRALGIA [None]
  - JOINT STIFFNESS [None]
  - MUSCULOSKELETAL STIFFNESS [None]
  - MYALGIA [None]
